FAERS Safety Report 12960431 (Version 2)
Quarter: 2019Q1

REPORT INFORMATION
  Report Type: Report from Study
  Country: US (occurrence: US)
  Receive Date: 20161121
  Receipt Date: 20190206
  Transmission Date: 20190417
  Serious: Yes (Hospitalization, Other)
  Sender: FDA-Public Use
  Company Number: US-MALLINCKRODT-T201605053

PATIENT
  Age: 49 Year
  Sex: Female

DRUGS (3)
  1. REPOSITORY CORTICOTROPIN INJECTION [Suspect]
     Active Substance: CORTICOTROPIN
     Indication: RHEUMATOID ARTHRITIS
     Dosage: 80U/1ML, 2 TIMES A WEEK (MONDAY AND THURSDAY)
     Route: 058
     Dates: start: 20151001
  2. REPOSITORY CORTICOTROPIN INJECTION [Suspect]
     Active Substance: CORTICOTROPIN
     Indication: MYOSITIS
     Dosage: 80 UNITS / 1 ML, 2 TIMES PER WEEK (MONDAY/ THURSDAY)
     Route: 058
  3. PREDNISONE. [Suspect]
     Active Substance: PREDNISONE
     Indication: PRODUCT USED FOR UNKNOWN INDICATION
     Dosage: UNK
     Route: 065

REACTIONS (17)
  - Granulocytes abnormal [Unknown]
  - Abdominal distension [Unknown]
  - Rash [Recovering/Resolving]
  - Drug effect decreased [Unknown]
  - Dyspnoea [Unknown]
  - Joint stiffness [Recovering/Resolving]
  - Irritability [Not Recovered/Not Resolved]
  - Product dose omission [Recovering/Resolving]
  - Heart rate increased [Recovering/Resolving]
  - Emotional disorder [Not Recovered/Not Resolved]
  - Respiratory syncytial virus infection [Not Recovered/Not Resolved]
  - Factor IX deficiency [Not Recovered/Not Resolved]
  - Headache [Recovering/Resolving]
  - Hearing disability [Unknown]
  - Red blood cell count increased [Unknown]
  - Red blood cell sedimentation rate increased [Unknown]
  - Fatigue [Not Recovered/Not Resolved]

NARRATIVE: CASE EVENT DATE: 2016
